FAERS Safety Report 9113268 (Version 2)
Quarter: 2013Q1

REPORT INFORMATION
  Report Type: Report from Study
  Country: US (occurrence: US)
  Receive Date: 20130211
  Receipt Date: 20130226
  Transmission Date: 20140127
  Serious: Yes (Other)
  Sender: FDA-Public Use
  Company Number: 2013SP000362

PATIENT
  Age: 47 Year
  Sex: Female
  Weight: 102 kg

DRUGS (7)
  1. PLACEBO [Suspect]
     Indication: BIPOLAR DISORDER
     Route: 048
     Dates: start: 20120725, end: 20120726
  2. SM-13496 [Suspect]
     Indication: BIPOLAR DISORDER
     Route: 048
     Dates: start: 20120426, end: 20120724
  3. TYLENOL /00020001/ [Concomitant]
     Indication: ABDOMINAL PAIN UPPER
     Route: 048
     Dates: start: 20120724, end: 20120724
  4. ZANTAC [Concomitant]
     Indication: ABDOMINAL PAIN UPPER
     Route: 048
     Dates: start: 20120724, end: 20120724
  5. DEPAKOTE ER [Concomitant]
     Indication: BIPOLAR DISORDER
     Route: 048
     Dates: start: 20120412, end: 20120726
  6. SYNTHROID [Concomitant]
     Indication: HYPOTHYROIDISM
     Route: 048
     Dates: start: 2010
  7. CYTOMEL [Concomitant]
     Indication: HYPOTHYROIDISM
     Route: 048
     Dates: start: 20120101

REACTIONS (1)
  - Cholecystitis chronic [Recovered/Resolved]
